FAERS Safety Report 6862238-3 (Version None)
Quarter: 2010Q3

REPORT INFORMATION
  Report Type: 
  Country: None (occurrence: None)
  Receive Date: 20100719
  Receipt Date: 20100705
  Transmission Date: 20110219
  Serious: Yes (Hospitalization)
  Sender: FDA-Public Use
  Company Number: 2010P1000133

PATIENT
  Age: 53 Year
  Sex: Male
  Weight: 83.9154 kg

DRUGS (3)
  1. METHYLPREDNISOLONE [Suspect]
     Indication: ARTHRITIS
     Dosage: 5 TABLETS;PER DAY X MULTIPLE CYCLES; PO
     Route: 048
     Dates: start: 20080101
  2. HYTRIN [Concomitant]
  3. MULTIPLE  MEDICATION [Concomitant]

REACTIONS (6)
  - MUSCLE SPASMS [None]
  - OEDEMA PERIPHERAL [None]
  - PNEUMONIA [None]
  - SCAR [None]
  - SKIN LESION [None]
  - URINARY RETENTION [None]
